FAERS Safety Report 9648110 (Version 3)
Quarter: 2014Q1

REPORT INFORMATION
  Report Type: Report from Study
  Country: JP (occurrence: JP)
  Receive Date: 20131028
  Receipt Date: 20140106
  Transmission Date: 20141002
  Serious: Yes (Other)
  Sender: FDA-Public Use
  Company Number: JP-UCBSA-101256

PATIENT
  Age: 65 Year
  Sex: Female
  Weight: 66 kg

DRUGS (7)
  1. CIMZIA [Suspect]
     Indication: RHEUMATOID ARTHRITIS
     Dosage: 200 MG SYRINGE
     Route: 058
     Dates: start: 20130927, end: 20130927
  2. RHEUMATREX [Concomitant]
     Dosage: UNKNOWN DOSE
     Route: 048
  3. LORCAM [Concomitant]
     Dosage: 4 MG DAILY
     Route: 048
  4. PREDNISOLONE [Concomitant]
     Dosage: 1 MG DAILY
     Route: 048
  5. FOLIAMIN [Concomitant]
     Indication: PROPHYLAXIS
     Dosage: UNKNOWN DOSE
     Route: 048
  6. MUCOSTA [Concomitant]
     Indication: PROPHYLAXIS
     Dosage: 100 MG DAILY
     Route: 048
  7. PARIET [Concomitant]
     Indication: PROPHYLAXIS
     Dosage: 10 MG DAILY
     Route: 048

REACTIONS (1)
  - Generalised erythema [Recovering/Resolving]
